FAERS Safety Report 5919407-6 (Version None)
Quarter: 2008Q3

REPORT INFORMATION
  Report Type: 
  Country: None (occurrence: None)
  Receive Date: 20080909
  Receipt Date: 20070814
  Transmission Date: 20090109
  Serious: Yes (Hospitalization, Other)
  Sender: FDA-Public Use
  Company Number: 163-20785-07041353

PATIENT
  Age: 59 Year
  Sex: Female

DRUGS (10)
  1. THALOMID [Suspect]
     Indication: MULTIPLE MYELOMA
     Dosage: 100 MG, QHS, ORAL
     Route: 048
     Dates: start: 20070101
  2. DECADRON [Concomitant]
  3. PREDNISONE [Concomitant]
  4. ARANESP [Concomitant]
  5. EVISTA [Concomitant]
  6. DIOVAN [Concomitant]
  7. LEVOTHYROXINE SODIUM [Concomitant]
  8. ASPIRIN [Concomitant]
  9. INSULIN (INSULIN) [Concomitant]
  10. CLAFORAN [Concomitant]

REACTIONS (11)
  - ASTHENIA [None]
  - BLOOD GLUCOSE INCREASED [None]
  - CHEST DISCOMFORT [None]
  - DYSPNOEA [None]
  - HYPERCALCAEMIA [None]
  - HYPOTENSION [None]
  - INFECTION [None]
  - MULTIPLE MYELOMA [None]
  - PANCYTOPENIA [None]
  - PYREXIA [None]
  - RENAL FAILURE ACUTE [None]
